FAERS Safety Report 24546163 (Version 1)
Quarter: 2024Q4

REPORT INFORMATION
  Report Type: Spontaneous
  Country: CA (occurrence: CA)
  Receive Date: 20241024
  Receipt Date: 20241024
  Transmission Date: 20250114
  Serious: Yes (Other)
  Sender: TEVA
  Company Number: CA-TEVA-VS-3255061

PATIENT
  Age: 75 Year
  Sex: Female

DRUGS (2)
  1. PREDNISONE [Suspect]
     Active Substance: PREDNISONE
     Indication: Product used for unknown indication
     Route: 065
  2. ENHERTU [Suspect]
     Active Substance: FAM-TRASTUZUMAB DERUXTECAN-NXKI
     Indication: HER2 positive breast cancer
     Dosage: DOSE FORM: POWDER FOR SOLUTION INTRAVENOUS, FREQUENCY:2 EVERY 3 WEEKS
     Route: 042

REACTIONS (4)
  - Pulmonary oedema [Unknown]
  - Pleural effusion [Unknown]
  - Lung neoplasm [Unknown]
  - Therapy change [Unknown]
